FAERS Safety Report 7532845 (Version 2)
Quarter: 2013Q1

REPORT INFORMATION
  Report Type: Spontaneous
  Country: US (occurrence: US)
  Receive Date: 20100806
  Receipt Date: 20130122
  Transmission Date: 20140127
  Serious: Yes (Hospitalization, Other)
  Sender: FDA-Public Use
  Company Number: US-PFIZER INC-2009171951

PATIENT
  Age: 57 Year
  Sex: Female

DRUGS (3)
  1. DILANTIN-125 [Suspect]
     Indication: CONVULSION PROPHYLAXIS
     Dosage: UNK
     Route: 048
     Dates: start: 20070507, end: 20070619
  2. DILANTIN-125 [Suspect]
     Dosage: 300 MG, 1X/DAY, EVERY AFTERNOON
     Route: 048
     Dates: start: 20070515
  3. ZOCOR [Concomitant]
     Dosage: 40 MG EVERY DAY, UNK
     Route: 048

REACTIONS (1)
  - Stevens-Johnson syndrome [Recovered/Resolved]
